FAERS Safety Report 8798145 (Version 3)
Quarter: 2013Q1

REPORT INFORMATION
  Report Type: Spontaneous
  Country: FR (occurrence: FR)
  Receive Date: 20120920
  Receipt Date: 20130221
  Transmission Date: 20140127
  Serious: Yes (Hospitalization, Other)
  Sender: FDA-Public Use
  Company Number: FR-AMGEN-FRASP2012058570

PATIENT
  Age: 58 Year
  Sex: Male

DRUGS (5)
  1. ENBREL [Suspect]
     Indication: RHEUMATOID ARTHRITIS
     Dosage: UNK
     Route: 058
     Dates: end: 20120814
  2. METOJECT [Suspect]
     Indication: RHEUMATOID ARTHRITIS
     Dosage: UNK
     Dates: end: 20120814
  3. PREVISCAN                          /00789001/ [Concomitant]
     Dosage: UNK
     Route: 048
     Dates: end: 20120814
  4. IXPRIM [Concomitant]
     Dosage: UNK
     Route: 048
     Dates: end: 20120814
  5. LOVENOX [Concomitant]
     Dosage: UNK

REACTIONS (6)
  - Intervertebral discitis [Recovered/Resolved]
  - Dysuria [Not Recovered/Not Resolved]
  - Abdominal discomfort [Not Recovered/Not Resolved]
  - Infrequent bowel movements [Not Recovered/Not Resolved]
  - Sepsis [Recovered/Resolved]
  - Pneumonia [Not Recovered/Not Resolved]
